FAERS Safety Report 23940419 (Version 2)
Quarter: 2025Q1

REPORT INFORMATION
  Report Type: Spontaneous
  Country: JP (occurrence: JP)
  Receive Date: 20240605
  Receipt Date: 20250313
  Transmission Date: 20250409
  Serious: Yes (Other)
  Sender: UNITED THERAPEUTICS
  Company Number: JP-UNITED THERAPEUTICS-UNT-2023-032640

PATIENT
  Age: 80 Year
  Sex: Female

DRUGS (3)
  1. TYVASO [Suspect]
     Active Substance: TREPROSTINIL
     Indication: Pulmonary arterial hypertension
     Dosage: 18 ?G, QID
     Dates: start: 20231102
  2. TYVASO [Suspect]
     Active Substance: TREPROSTINIL
     Dosage: 54 ?G, QID
  3. TYVASO [Suspect]
     Active Substance: TREPROSTINIL
     Dosage: 54 ?G, BID
     Dates: end: 202411

REACTIONS (5)
  - Renal impairment [Not Recovered/Not Resolved]
  - Head discomfort [Unknown]
  - Drug ineffective [Unknown]
  - Compression fracture [Unknown]
  - Underdose [Unknown]

NARRATIVE: CASE EVENT DATE: 20231101
